FAERS Safety Report 24055880 (Version 2)
Quarter: 2024Q3

REPORT INFORMATION
  Report Type: Spontaneous
  Country: JP (occurrence: JP)
  Receive Date: 20240705
  Receipt Date: 20240711
  Transmission Date: 20241017
  Serious: Yes (Death)
  Sender: BAYER
  Company Number: JP-BAYER-2024A097019

PATIENT
  Age: 47 Year
  Sex: Female

DRUGS (2)
  1. GADOBUTROL [Suspect]
     Active Substance: GADOBUTROL
     Indication: Magnetic resonance imaging heart
     Dosage: 10 ML, ONCE
     Route: 042
     Dates: start: 20240628, end: 20240628
  2. GADOBUTROL [Suspect]
     Active Substance: GADOBUTROL
     Indication: Dilated cardiomyopathy

REACTIONS (2)
  - Anaphylactic shock [Fatal]
  - Cardiac arrest [Fatal]

NARRATIVE: CASE EVENT DATE: 20240628
